FAERS Safety Report 10528076 (Version 1)
Quarter: 2014Q4

REPORT INFORMATION
  Report Type: Spontaneous
  Country: US (occurrence: None)
  Receive Date: 20141016
  Receipt Date: 20141016
  Transmission Date: 20150528
  Serious: Yes (Other)
  Sender: FDA-Public Use
  Company Number: None

PATIENT
  Age: 57 Year
  Sex: Female

DRUGS (9)
  1. SYNTHROID [Concomitant]
     Active Substance: LEVOTHYROXINE SODIUM
  2. DULOXETINE [Concomitant]
     Active Substance: DULOXETINE
  3. GABAPENTIN. [Concomitant]
     Active Substance: GABAPENTIN
  4. METHOCARBAMOL. [Concomitant]
     Active Substance: METHOCARBAMOL
  5. ATACAND [Concomitant]
     Active Substance: CANDESARTAN CILEXETIL
  6. LOSARTAN [Concomitant]
     Active Substance: LOSARTAN
  7. MVI [Concomitant]
     Active Substance: VITAMINS
  8. XALATAN [Concomitant]
     Active Substance: LATANOPROST
  9. ARIMIDEX [Suspect]
     Active Substance: ANASTROZOLE
     Dosage: 1 TAB
     Route: 048

REACTIONS (4)
  - Emotional disorder [None]
  - Fatigue [None]
  - Influenza like illness [None]
  - Arthralgia [None]
